FAERS Safety Report 7488999-0 (Version None)
Quarter: 2011Q2

REPORT INFORMATION
  Report Type: 
  Country: None (occurrence: None)
  Receive Date: 20110518
  Receipt Date: 20110422
  Transmission Date: 20111010
  Serious: Yes (Other)
  Sender: FDA-Public Use
  Company Number: US-BAYER-2010-002733

PATIENT
  Age: 28 Year
  Sex: Female
  Weight: 83.9 kg

DRUGS (3)
  1. PROVENTIL [Concomitant]
     Dosage: UNK UNK, PRN
  2. NSAID'S [Concomitant]
     Dosage: UNK UNK, PRN
  3. YAZ [Suspect]
     Indication: CONTRACEPTION
     Dosage: UNK
     Dates: start: 20061114, end: 20061218

REACTIONS (7)
  - EMOTIONAL DISTRESS [None]
  - ANXIETY [None]
  - MENTAL DISORDER [None]
  - RETINAL ARTERY OCCLUSION [None]
  - VISUAL ACUITY REDUCED [None]
  - MIGRAINE [None]
  - PAIN [None]
